FAERS Safety Report 14154204 (Version 4)
Quarter: 2018Q1

REPORT INFORMATION
  Report Type: Spontaneous
  Country: JP (occurrence: JP)
  Receive Date: 20171102
  Receipt Date: 20180201
  Transmission Date: 20180508
  Serious: Yes (Other)
  Sender: FDA-Public Use
  Company Number: JP-UCBSA-2017043293

PATIENT
  Weight: 2.67 kg

DRUGS (2)
  1. CIMZIA [Suspect]
     Active Substance: CERTOLIZUMAB PEGOL
     Indication: RHEUMATOID ARTHRITIS
     Dosage: UNK
     Route: 064
     Dates: start: 201603, end: 201603
  2. CIMZIA [Suspect]
     Active Substance: CERTOLIZUMAB PEGOL
     Dosage: UNK UNK, MONTHLY (QM)
     Route: 064
     Dates: start: 201607, end: 20161026

REACTIONS (2)
  - Foetal exposure during pregnancy [Unknown]
  - Umbilical cord around neck [Recovered/Resolved]

NARRATIVE: CASE EVENT DATE: 2016
